FAERS Safety Report 25244347 (Version 1)
Quarter: 2025Q2

REPORT INFORMATION
  Report Type: Report from Study
  Country: US (occurrence: US)
  Receive Date: 20250428
  Receipt Date: 20250428
  Transmission Date: 20250717
  Serious: No
  Sender: Unknown Manufacturer
  Company Number: US-MIRUM PHARMACEUTICALS, INC.-US-MIR-25-00175

PATIENT

DRUGS (4)
  1. LIVMARLI [Suspect]
     Active Substance: MARALIXIBAT CHLORIDE
     Indication: Biliary obstruction
     Dosage: 0.76 MILLILITER, BID (19 MG/ML ORAL SOLUTION (PFIC FORMULATION))
     Route: 048
     Dates: start: 20240702, end: 202503
  2. LIVMARLI [Suspect]
     Active Substance: MARALIXIBAT CHLORIDE
     Indication: Bilirubin excretion disorder
     Dosage: 0.76 MILLILITER, BID (19 MG/ML ORAL SOLUTION (PFIC FORMULATION))
     Route: 048
     Dates: start: 202504
  3. LIVMARLI [Suspect]
     Active Substance: MARALIXIBAT CHLORIDE
     Indication: Pruritus
  4. LIVMARLI [Suspect]
     Active Substance: MARALIXIBAT CHLORIDE
     Indication: Progressive familial intrahepatic cholestasis

REACTIONS (7)
  - Insomnia [Not Recovered/Not Resolved]
  - Pruritus [Not Recovered/Not Resolved]
  - Jaundice [Not Recovered/Not Resolved]
  - Full blood count increased [Not Recovered/Not Resolved]
  - Liver function test increased [Not Recovered/Not Resolved]
  - Lethargy [Not Recovered/Not Resolved]
  - Therapy interrupted [Recovered/Resolved]

NARRATIVE: CASE EVENT DATE: 20250301
